FAERS Safety Report 7481133-2 (Version None)
Quarter: 2011Q2

REPORT INFORMATION
  Report Type: 
  Country: None (occurrence: None)
  Receive Date: 20110516
  Receipt Date: 20110505
  Transmission Date: 20111010
  Serious: Yes (Hospitalization)
  Sender: FDA-Public Use
  Company Number: US-SANOFI-AVENTIS-2011SA025213

PATIENT
  Age: 82 Year
  Sex: Female

DRUGS (4)
  1. DIGOXIN [Interacting]
     Route: 065
  2. DRONEDARONE HCL [Suspect]
     Route: 065
  3. METOPROLOL SUCCINATE [Concomitant]
     Indication: ATRIAL FIBRILLATION
     Route: 065
  4. DIGOXIN [Interacting]
     Indication: ATRIAL FIBRILLATION
     Dosage: LOADING DOSE
     Route: 065

REACTIONS (6)
  - TOXICITY TO VARIOUS AGENTS [None]
  - DIZZINESS [None]
  - NODAL ARRHYTHMIA [None]
  - CARDIOACTIVE DRUG LEVEL INCREASED [None]
  - BLOOD POTASSIUM INCREASED [None]
  - DRUG INTERACTION [None]
